FAERS Safety Report 9242714 (Version 4)
Quarter: 2015Q3

REPORT INFORMATION
  Report Type: Spontaneous
  Country: US (occurrence: US)
  Receive Date: 20130419
  Receipt Date: 20150713
  Transmission Date: 20151125
  Serious: Yes (Death, Other)
  Sender: FDA-Public Use
  Company Number: US-MILLENNIUM PHARMACEUTICALS, INC.-2013-02922

PATIENT
  Age: 72 Year
  Sex: Male

DRUGS (1)
  1. VELCADE [Suspect]
     Active Substance: BORTEZOMIB
     Indication: AMYLOIDOSIS
     Dosage: UNK
     Route: 042
     Dates: start: 20121016, end: 20121218

REACTIONS (10)
  - Product use issue [Unknown]
  - Oedema peripheral [Unknown]
  - Headache [Unknown]
  - Sepsis [Fatal]
  - Renal failure [Fatal]
  - Nausea [Unknown]
  - Anxiety [Unknown]
  - Asthenia [Unknown]
  - Vertigo [Unknown]
  - Fatigue [Unknown]

NARRATIVE: CASE EVENT DATE: 20121016
